FAERS Safety Report 7341331-5 (Version None)
Quarter: 2011Q1

REPORT INFORMATION
  Report Type: 
  Country: None (occurrence: None)
  Receive Date: 20110301
  Receipt Date: 20110214
  Transmission Date: 20110831
  Serious: Yes (Hospitalization, Other)
  Sender: FDA-Public Use
  Company Number: 1713747-2011-00005

PATIENT
  Sex: Female
  Weight: 75 kg

DRUGS (2)
  1. LIBERTY CYCLER [Concomitant]
  2. DELFLEX W/ DEXTROSE 2.5% LOW MAGNESIUM LOW CALCIUM [Suspect]
     Indication: RENAL FAILURE CHRONIC
     Dosage: INTRAPERITONEALLY
     Route: 033
     Dates: start: 20110209

REACTIONS (5)
  - CLAVICLE FRACTURE [None]
  - RIB FRACTURE [None]
  - CONVULSION [None]
  - SYNCOPE [None]
  - FALL [None]
